FAERS Safety Report 22236331 (Version 1)
Quarter: 2023Q2

REPORT INFORMATION
  Report Type: Spontaneous
  Country: US (occurrence: None)
  Receive Date: 20230420
  Receipt Date: 20230420
  Transmission Date: 20230722
  Serious: No
  Sender: FDA-Public Use
  Company Number: US-ROCHE-3040717

PATIENT
  Age: 90 Year
  Sex: Female
  Weight: 49.940 kg

DRUGS (4)
  1. AVASTIN [Suspect]
     Active Substance: BEVACIZUMAB
     Indication: Macular degeneration
     Dosage: YES
     Route: 065
     Dates: start: 20220214
  2. OCUVITE [Concomitant]
     Active Substance: VITAMINS
     Dosage: MULTIPLE INGREDIENTS; STARTED BEFORE AVASTIN ;ONGOING: YES
     Route: 048
  3. THERABREATH [Concomitant]
     Indication: Dry mouth
     Dosage: STARTED BEFORE AVASTIN ;ONGOING: YES
     Route: 048
  4. MINERALS\VITAMINS [Concomitant]
     Active Substance: MINERALS\VITAMINS
     Dosage: MULTIPLE INGREDIENTS; STARTED BEFORE AVASTIN ;ONGOING: YES
     Route: 048

REACTIONS (3)
  - Pain [Recovered/Resolved]
  - Hypoaesthesia [Recovered/Resolved]
  - Off label use [Unknown]

NARRATIVE: CASE EVENT DATE: 20220214
